FAERS Safety Report 9179417 (Version 1)
Quarter: 2013Q1

REPORT INFORMATION
  Report Type: Spontaneous
  Country: DE (occurrence: FR)
  Receive Date: 20130321
  Receipt Date: 20130321
  Transmission Date: 20140127
  Serious: Yes (Life-Threatening, Other)
  Sender: FDA-Public Use
  Company Number: FR-FRI-1000043587

PATIENT
  Sex: Female

DRUGS (2)
  1. MEMANTINE [Suspect]
     Indication: DEMENTIA ALZHEIMER^S TYPE
     Dosage: 1 DF
     Route: 048
     Dates: start: 20100323, end: 20130107
  2. RIVASTIGMINE TARTRATE [Suspect]
     Indication: DEMENTIA ALZHEIMER^S TYPE
     Dosage: 1 DF
     Route: 062
     Dates: start: 20121230, end: 20121231

REACTIONS (7)
  - Apparent death [Unknown]
  - Confusional state [Recovering/Resolving]
  - Abasia [Recovering/Resolving]
  - Aphagia [Recovering/Resolving]
  - Drug-induced liver injury [Recovering/Resolving]
  - Fall [Unknown]
  - Decreased appetite [Recovering/Resolving]
